FAERS Safety Report 4496983-4 (Version None)
Quarter: 2004Q3

REPORT INFORMATION
  Report Type: 
  Country: None (occurrence: None)
  Receive Date: 20040928
  Receipt Date: 20040721
  Transmission Date: 20050211
  Serious: No
  Sender: FDA-Public Use
  Company Number: 04P-163-0267683-00

PATIENT
  Age: 63 Year
  Sex: Female
  Weight: 68.0396 kg

DRUGS (6)
  1. HUMIRA [Suspect]
     Indication: RHEUMATOID ARTHRITIS
     Dosage: 40 MG, 1 IN 2 WK, SUBCUTANEOUS
     Route: 058
     Dates: start: 20040501
  2. PHENYTOIN SODIUM [Concomitant]
  3. AMLODIPINE BESYLATE [Concomitant]
  4. PREDNISONE [Concomitant]
  5. PROPACET 100 [Concomitant]
  6. IBUPROFEN [Concomitant]

REACTIONS (2)
  - HEADACHE [None]
  - VISION BLURRED [None]
